FAERS Safety Report 11746682 (Version 2)
Quarter: 2015Q4

REPORT INFORMATION
  Report Type: Spontaneous
  Country: US (occurrence: None)
  Receive Date: 20151116
  Receipt Date: 20151123
  Transmission Date: 20160304
  Serious: Yes (Hospitalization, Disabling, Other)
  Sender: FDA-Public Use
  Company Number: 2015055588

PATIENT
  Age: 30 Year
  Sex: Female

DRUGS (2)
  1. DESMOPRESSIN (DESMOPRESSIN ACETATE) [Suspect]
     Active Substance: DESMOPRESSIN ACETATE
     Indication: VON WILLEBRAND^S DISEASE
  2. DESMOPRESSIN (DESMOPRESSIN ACETATE) [Suspect]
     Active Substance: DESMOPRESSIN ACETATE
     Indication: PROPHYLAXIS

REACTIONS (6)
  - Quadriparesis [None]
  - Psychomotor seizures [None]
  - Unresponsive to stimuli [None]
  - Hyponatraemia [None]
  - Pseudobulbar palsy [None]
  - Osmotic demyelination syndrome [None]
